FAERS Safety Report 7867466-6 (Version None)
Quarter: 2011Q4

REPORT INFORMATION
  Report Type: 
  Country: None (occurrence: None)
  Receive Date: 20111028
  Receipt Date: 20111018
  Transmission Date: 20120403
  Serious: Yes (Hospitalization, Other)
  Sender: FDA-Public Use
  Company Number: US-BAYER-2011-019506

PATIENT
  Age: 48 Year
  Sex: Female
  Weight: 63.039 kg

DRUGS (19)
  1. VALTREX [Concomitant]
     Indication: HERPES VIRUS INFECTION
     Dosage: UNK UNK, BID
     Route: 048
     Dates: start: 20000101
  2. HYDROCODONE BITARTRATE AND ACETAMINOPHEN [Concomitant]
     Indication: PAIN
     Dosage: UNK
     Route: 048
     Dates: start: 20020820, end: 20090401
  3. FEXOFENADINE [Concomitant]
     Dosage: 180 MG, PRN
     Route: 048
     Dates: start: 20071120, end: 20081124
  4. D-AMPHETAMINE [Concomitant]
     Indication: ATTENTION DEFICIT/HYPERACTIVITY DISORDER
     Dosage: 20 MG, UNK
     Route: 048
     Dates: start: 20080401, end: 20110101
  5. TYLENOL PM EXTRA [Concomitant]
     Dosage: UNK
     Route: 048
     Dates: start: 20081014
  6. YASMIN [Suspect]
  7. PROZAC [Concomitant]
     Indication: DEPRESSION
     Dosage: UNK
     Route: 048
     Dates: start: 20000623
  8. VIVELLE [Concomitant]
     Indication: MENOPAUSE
     Dosage: 0.075 MG, UNK
     Route: 062
     Dates: start: 20070719, end: 20081014
  9. ADDERALL 5 [Concomitant]
  10. YASMIN [Suspect]
     Indication: PREMENSTRUAL SYNDROME
  11. LEXAPRO [Concomitant]
     Indication: ANXIETY
     Dosage: UNK
     Route: 048
     Dates: start: 20081014, end: 20091101
  12. METHYLPREDNISOLONE [Concomitant]
     Dosage: 4 MG, UNK
     Route: 048
     Dates: start: 20081124
  13. ACTIVELLA [Concomitant]
     Dosage: UNK
     Route: 048
     Dates: start: 20090115, end: 20101028
  14. REGLAN [Concomitant]
  15. YASMIN [Suspect]
     Indication: CONTRACEPTION
     Dosage: UNK
     Route: 048
     Dates: start: 20050406, end: 20070201
  16. CORTISPORIN [Concomitant]
     Dosage: UNK UNK, QID
  17. DEMEROL [Concomitant]
  18. VESICARE [Concomitant]
     Dosage: 5 MG, QD
     Route: 048
     Dates: start: 20070620, end: 20101028
  19. NITROFURANTOIN [Concomitant]
     Dosage: 10 MG, BID
     Route: 048
     Dates: start: 20090116

REACTIONS (6)
  - EMOTIONAL DISTRESS [None]
  - CHOLECYSTITIS CHRONIC [None]
  - CHOLELITHIASIS [None]
  - ANXIETY [None]
  - INJURY [None]
  - PAIN [None]
